FAERS Safety Report 6837208-1 (Version None)
Quarter: 2010Q3

REPORT INFORMATION
  Report Type: 
  Country: None (occurrence: None)
  Receive Date: 20100713
  Receipt Date: 20070505
  Transmission Date: 20110219
  Serious: No
  Sender: FDA-Public Use
  Company Number: US-PFIZER INC-2007037593

PATIENT
  Age: 73 Year
  Sex: Female
  Weight: 54.43 kg

DRUGS (4)
  1. CHANTIX [Suspect]
     Indication: SMOKING CESSATION THERAPY
     Dates: start: 20070501
  2. SYNTHROID [Concomitant]
     Indication: THYROID DISORDER
  3. ALBUTEROL [Concomitant]
     Indication: EMPHYSEMA
  4. STROVITE PLUS [Concomitant]
     Indication: HYPOTENSION

REACTIONS (1)
  - ABDOMINAL PAIN UPPER [None]
